FAERS Safety Report 7271026-8 (Version None)
Quarter: 2011Q1

REPORT INFORMATION
  Report Type: 
  Country: None (occurrence: None)
  Receive Date: 20110202
  Receipt Date: 20110131
  Transmission Date: 20110831
  Serious: Yes (Death)
  Sender: FDA-Public Use
  Company Number: US-AMGEN-USASP2010010574

PATIENT
  Age: 66 Year
  Sex: Female

DRUGS (5)
  1. RITUXIMAB [Concomitant]
  2. NPLATE [Suspect]
     Dates: start: 20100127, end: 20101117
  3. ZOMETA [Concomitant]
  4. NPLATE [Suspect]
     Indication: IDIOPATHIC THROMBOCYTOPENIC PURPURA
     Dosage: 2 A?G/KG, UNK
     Dates: start: 20100127, end: 20101117
  5. NPLATE [Suspect]
     Dosage: 2 A?G, UNK
     Dates: start: 20101117

REACTIONS (1)
  - LYMPHOMA [None]
